FAERS Safety Report 4684479-6 (Version None)
Quarter: 2005Q2

REPORT INFORMATION
  Report Type: 
  Country: None (occurrence: None)
  Receive Date: 20050606
  Receipt Date: 20050524
  Transmission Date: 20051028
  Serious: Yes (Death)
  Sender: FDA-Public Use
  Company Number: 05-04-0795

PATIENT
  Age: 36 Year
  Sex: Female
  Weight: 99.7913 kg

DRUGS (1)
  1. CLOZAPINE [Suspect]
     Indication: BIPOLAR I DISORDER
     Dosage: 400MG QHS ORAL
     Route: 048
     Dates: start: 20020901, end: 20050401

REACTIONS (2)
  - MYOCARDIAL INFARCTION [None]
  - TREATMENT NONCOMPLIANCE [None]
